FAERS Safety Report 12414752 (Version 2)
Quarter: 2016Q3

REPORT INFORMATION
  Report Type: Spontaneous
  Country: RU (occurrence: RU)
  Receive Date: 20160529
  Receipt Date: 20160906
  Transmission Date: 20161109
  Serious: No
  Sender: FDA-Public Use
  Company Number: RU-SA-2016SA098079

PATIENT
  Age: 83 Year
  Sex: Male

DRUGS (14)
  1. ASPIRIN. [Suspect]
     Active Substance: ASPIRIN
     Route: 065
     Dates: start: 20160215, end: 20160408
  2. ROSUVASTATIN. [Concomitant]
     Active Substance: ROSUVASTATIN
     Dates: start: 20160331
  3. ATORVASTATIN [Concomitant]
     Active Substance: ATORVASTATIN
     Dates: start: 20160215, end: 20160330
  4. IRON SULFATE [Concomitant]
     Active Substance: FERROUS SULFATE ANHYDROUS
     Dates: start: 20160408
  5. CLOPIDOGREL BISULFATE. [Suspect]
     Active Substance: CLOPIDOGREL BISULFATE
     Route: 065
     Dates: start: 20160215, end: 20160408
  6. ENALAPRIL [Concomitant]
     Active Substance: ENALAPRIL
     Dates: start: 20160215, end: 20160330
  7. OMEPRAZOLE. [Concomitant]
     Active Substance: OMEPRAZOLE
     Dates: start: 20160331
  8. DETRALEX [Concomitant]
     Active Substance: DIOSMIN\HESPERIDIN
     Dates: start: 20160408
  9. VEROSPIRON [Concomitant]
     Active Substance: SPIRONOLACTONE
     Dates: start: 20160215
  10. TRIBENOSIDE [Concomitant]
     Active Substance: TRIBENOSIDE
     Dates: start: 20160408
  11. WARFARIN [Suspect]
     Active Substance: WARFARIN
     Route: 065
     Dates: start: 20160405, end: 20160407
  12. TORASEMIDE [Concomitant]
     Active Substance: TORSEMIDE
     Dates: start: 20160215, end: 20160330
  13. LIDOCAINE. [Concomitant]
     Active Substance: LIDOCAINE
     Dates: start: 20160408
  14. METOPROLOL. [Concomitant]
     Active Substance: METOPROLOL
     Dates: start: 20160215

REACTIONS (1)
  - Haemorrhoidal haemorrhage [Unknown]

NARRATIVE: CASE EVENT DATE: 20160408
